FAERS Safety Report 13716953 (Version 1)
Quarter: 2017Q3

REPORT INFORMATION
  Report Type: Spontaneous
  Country: US (occurrence: US)
  Receive Date: 20170703
  Receipt Date: 20170703
  Transmission Date: 20171127
  Serious: Yes (Other)
  Sender: FDA-Public Use
  Company Number: None

PATIENT
  Age: 29 Year
  Sex: Male
  Weight: 85.5 kg

DRUGS (1)
  1. PAROXETINE 25 MG ER [Suspect]
     Active Substance: PAROXETINE HYDROCHLORIDE
     Indication: DEPRESSION
     Route: 048

REACTIONS (3)
  - Product substitution issue [None]
  - Emotional disorder [None]
  - Suicidal behaviour [None]

NARRATIVE: CASE EVENT DATE: 20170614
